FAERS Safety Report 8303826-7 (Version None)
Quarter: 2012Q2

REPORT INFORMATION
  Report Type: 
  Country: None (occurrence: None)
  Receive Date: 20120423
  Receipt Date: 20120417
  Transmission Date: 20120825
  Serious: Yes (Hospitalization, Other)
  Sender: FDA-Public Use
  Company Number: PHFR2012GB001122

PATIENT
  Sex: Male

DRUGS (1)
  1. CLOZARIL [Suspect]
     Indication: SCHIZOPHRENIA
     Dosage: 300 MG, DAILY
     Route: 048
     Dates: start: 20111219, end: 20120215

REACTIONS (8)
  - NOCTURIA [None]
  - MENTAL IMPAIRMENT [None]
  - POLLAKIURIA [None]
  - SCHIZOPHRENIA [None]
  - NEUTROPENIA [None]
  - NAUSEA [None]
  - POLYDIPSIA [None]
  - HEADACHE [None]
